FAERS Safety Report 13380094 (Version 2)
Quarter: 2017Q2

REPORT INFORMATION
  Report Type: Report from Study
  Country: US (occurrence: US)
  Receive Date: 20170328
  Receipt Date: 20170622
  Transmission Date: 20170830
  Serious: Yes (Death, Hospitalization)
  Sender: FDA-Public Use
  Company Number: US-VIFOR (INTERNATIONAL) INC.-VIT-2017-03115

PATIENT
  Age: 89 Year
  Sex: Female
  Weight: 72.64 kg

DRUGS (16)
  1. ARICEPT [Concomitant]
     Active Substance: DONEPEZIL HYDROCHLORIDE
     Indication: DEMENTIA
  2. IRON [Concomitant]
     Active Substance: IRON
  3. LIPITOL [Concomitant]
  4. LEVOTHYROXINE. [Concomitant]
     Active Substance: LEVOTHYROXINE
  5. LABETALOL [Concomitant]
     Active Substance: LABETALOL\LABETALOL HYDROCHLORIDE
  6. ERGOCALCIFEROL. [Concomitant]
     Active Substance: ERGOCALCIFEROL
  7. ZYTRIX [Concomitant]
  8. BUMETANIDE. [Concomitant]
     Active Substance: BUMETANIDE
  9. NEXIUM [Concomitant]
     Active Substance: ESOMEPRAZOLE MAGNESIUM
  10. CENTRUM [Concomitant]
     Active Substance: VITAMINS
  11. TRADJENTA [Concomitant]
     Active Substance: LINAGLIPTIN
  12. LEVEMIR [Concomitant]
     Active Substance: INSULIN DETEMIR
  13. SODIUM CARBONATE ANHYDROUS [Concomitant]
  14. CALCIUM [Concomitant]
     Active Substance: CALCIUM
  15. VELTASSA [Suspect]
     Active Substance: PATIROMER
     Indication: BLOOD POTASSIUM INCREASED
     Route: 048
     Dates: start: 201604, end: 20170324
  16. NAMENDA [Concomitant]
     Active Substance: MEMANTINE HYDROCHLORIDE

REACTIONS (3)
  - Death [Fatal]
  - Cystitis [Unknown]
  - Pulmonary oedema [Unknown]

NARRATIVE: CASE EVENT DATE: 201612
